FAERS Safety Report 14364675 (Version 2)
Quarter: 2018Q1

REPORT INFORMATION
  Report Type: Spontaneous
  Country: FR (occurrence: FR)
  Receive Date: 20180108
  Receipt Date: 20180117
  Transmission Date: 20180509
  Serious: Yes (Hospitalization, Other)
  Sender: FDA-Public Use
  Company Number: FR-SA-2017SA265968

PATIENT
  Age: 0 Day
  Sex: Female
  Weight: .86 kg

DRUGS (4)
  1. ELIQUIS [Suspect]
     Active Substance: APIXABAN
     Indication: EMBOLISM VENOUS
     Route: 064
     Dates: start: 20170402, end: 20170415
  2. LOVENOX [Suspect]
     Active Substance: ENOXAPARIN SODIUM
     Indication: EMBOLISM VENOUS
     Route: 064
     Dates: start: 20170415, end: 20170930
  3. PANTOPRAZOLE [Suspect]
     Active Substance: PANTOPRAZOLE
     Indication: MALLORY-WEISS SYNDROME
     Route: 064
     Dates: start: 20170624, end: 20170724
  4. INNOHEP [Suspect]
     Active Substance: TINZAPARIN SODIUM
     Indication: EMBOLISM VENOUS
     Route: 064
     Dates: start: 20170517, end: 20170924

REACTIONS (5)
  - Premature baby [Recovering/Resolving]
  - Bronchopulmonary dysplasia [Recovering/Resolving]
  - Retinopathy [Unknown]
  - Foetal growth restriction [Recovering/Resolving]
  - Foetal exposure during pregnancy [Unknown]

NARRATIVE: CASE EVENT DATE: 20170922
